FAERS Safety Report 11184214 (Version 3)
Quarter: 2015Q3

REPORT INFORMATION
  Report Type: Spontaneous
  Country: US (occurrence: US)
  Receive Date: 20150612
  Receipt Date: 20150727
  Transmission Date: 20151125
  Serious: No
  Sender: FDA-Public Use
  Company Number: US-PFIZER INC-2015195497

PATIENT
  Age: 71 Year
  Sex: Female

DRUGS (9)
  1. LOTRISONE [Concomitant]
     Active Substance: BETAMETHASONE DIPROPIONATE\CLOTRIMAZOLE
     Dosage: 2X/DAY, AS NEEDED (BETAMETHASONE DIPROPIONATE-0.05%, CLOTRIMAZOLE- 1%)
  2. MSIR [Concomitant]
     Active Substance: MORPHINE SULFATE
     Dosage: 30 MG, 4X/DAY
     Route: 048
  3. ATENOLOL. [Concomitant]
     Active Substance: ATENOLOL
     Indication: BLOOD PRESSURE ABNORMAL
     Dosage: 25 MG, 1X/DAY (ONE TAB MID DAY OR EVENING)
     Route: 048
  4. NORCO [Concomitant]
     Active Substance: ACETAMINOPHEN\HYDROCODONE BITARTRATE
     Dosage: 1 DF, 3X/DAY (HYDROCODONE BITARTRATE- 10 MG, ACETAMINOPHEN-325 MG)
     Route: 048
  5. SKELAXINE [Concomitant]
     Indication: MUSCULOSKELETAL DISCOMFORT
     Dosage: 800 MG, 2X/DAY
     Route: 048
  6. NAPROXEN. [Concomitant]
     Active Substance: NAPROXEN
     Indication: ARTHRALGIA
     Dosage: 500 MG, 2X/DAY
     Route: 048
  7. ZANTAC [Concomitant]
     Active Substance: RANITIDINE HYDROCHLORIDE
     Indication: ABDOMINAL DISCOMFORT
     Dosage: 150 MG, 1X/DAY AS NEEDED
     Route: 048
  8. PREVACID [Concomitant]
     Active Substance: LANSOPRAZOLE
     Dosage: UNK UNK, AS NEEDED
  9. PREMARIN [Suspect]
     Active Substance: ESTROGENS, CONJUGATED
     Indication: OESTROGEN REPLACEMENT THERAPY
     Dosage: 0.625 MG, 1X/DAY
     Route: 048
     Dates: end: 20150520

REACTIONS (3)
  - Insomnia [Not Recovered/Not Resolved]
  - Asthenia [Unknown]
  - Memory impairment [Not Recovered/Not Resolved]
